FAERS Safety Report 6826061-8 (Version None)
Quarter: 2010Q3

REPORT INFORMATION
  Report Type: 
  Country: None (occurrence: None)
  Receive Date: 20100709
  Receipt Date: 20100702
  Transmission Date: 20110219
  Serious: Yes (Other)
  Sender: FDA-Public Use
  Company Number: VE-ASTRAZENECA-2010SE31051

PATIENT
  Age: 55 Year
  Sex: Male
  Weight: 106 kg

DRUGS (1)
  1. NEXIUM [Suspect]
     Indication: GASTROOESOPHAGEAL REFLUX DISEASE
     Route: 048
     Dates: start: 20080101, end: 20100501

REACTIONS (2)
  - ARTHRALGIA [None]
  - BONE MARROW OEDEMA [None]
